FAERS Safety Report 17930270 (Version 1)
Quarter: 2020Q2

REPORT INFORMATION
  Report Type: Spontaneous
  Country: DE (occurrence: DE)
  Receive Date: 20200623
  Receipt Date: 20200623
  Transmission Date: 20200714
  Serious: Yes (Hospitalization)
  Sender: FDA-Public Use
  Company Number: DE-TEVA-2020-DE-1789446

PATIENT
  Age: 18 Year
  Sex: Female
  Weight: 46.1 kg

DRUGS (9)
  1. AZATHIOPRIN [Suspect]
     Active Substance: AZATHIOPRINE
     Dosage: 150 MILLIGRAM DAILY; 1-0-0-0
  2. PREDNISOLON [Suspect]
     Active Substance: PREDNISOLONE
     Dosage: 5 MILLIGRAM DAILY; 1-0-0-0
  3. METAMIZOL [Concomitant]
     Active Substance: METAMIZOLE SODIUM
     Dosage: 500 MG, 40-40-40-40, DROPS
  4. LOPERAMID [Concomitant]
     Active Substance: LOPERAMIDE
     Dosage: 6 MILLIGRAM DAILY; 2 MG, 1-1-1-0, JUICE
  5. URSODEOXYCHOLSAURE [Concomitant]
     Dosage: 4 DOSAGE FORMS DAILY; 250 MG, 2-0-2-0
  6. COLECALCIFEROL (VITAMIN D) [Concomitant]
     Dosage: 500 IU (INTERNATIONAL UNIT) DAILY; 1-0-0-0
  7. PANTOPRAZOL [Concomitant]
     Active Substance: PANTOPRAZOLE SODIUM
     Dosage: 40 MILLIGRAM DAILY; 0-0-1-0
  8. TILIDINE/NALOXONE [Concomitant]
     Active Substance: NALOXONE HYDROCHLORIDE\TILIDINE HYDROCHLORIDE
     Dosage: 2 DOSAGE FORMS DAILY; 4|50 MG, 1-0-1-0
  9. MAGALDRAT [Concomitant]
     Active Substance: MAGALDRATE
     Dosage: 4800 MILLIGRAM DAILY; 1-1-1-0, SACHET

REACTIONS (6)
  - Pain [Unknown]
  - Musculoskeletal pain [Unknown]
  - Abdominal pain lower [Unknown]
  - Diarrhoea [Unknown]
  - Vomiting [Unknown]
  - Pyrexia [Unknown]
